FAERS Safety Report 21563946 (Version 2)
Quarter: 2022Q4

REPORT INFORMATION
  Report Type: Report from Study
  Country: CO (occurrence: CO)
  Receive Date: 20221108
  Receipt Date: 20221212
  Transmission Date: 20230113
  Serious: Yes (Death, Hospitalization, Other)
  Sender: FDA-Public Use
  Company Number: CO-ASTPRD-AER-2022-024343

PATIENT
  Age: 54 Year
  Sex: Male

DRUGS (1)
  1. TACROLIMUS [Suspect]
     Active Substance: TACROLIMUS
     Indication: Renal transplant
     Route: 048
     Dates: start: 20211213

REACTIONS (6)
  - Diabetic coma [Fatal]
  - Thrombosis [Fatal]
  - Disease recurrence [Fatal]
  - Fistula [Recovering/Resolving]
  - Visual impairment [Recovering/Resolving]
  - Swelling face [Recovering/Resolving]
